FAERS Safety Report 6027586-8 (Version None)
Quarter: 2009Q1

REPORT INFORMATION
  Report Type: 
  Country: None (occurrence: None)
  Receive Date: 20090105
  Receipt Date: 20081202
  Transmission Date: 20090719
  Serious: No
  Sender: FDA-Public Use
  Company Number: US-BAYER-200814697BCC

PATIENT
  Age: 70 Year
  Sex: Female
  Weight: 104 kg

DRUGS (7)
  1. ALEVE (CAPLET) [Suspect]
     Indication: ARTHRALGIA
     Dosage: UNIT DOSE: 220 MG
     Route: 048
     Dates: start: 20081126, end: 20081202
  2. DIAZIDE [Concomitant]
  3. LOPRESSOR [Concomitant]
  4. NORVASC [Concomitant]
  5. VITAMIN [Concomitant]
  6. FISH OIL [Concomitant]
  7. SYNTHROID [Concomitant]

REACTIONS (1)
  - DIARRHOEA [None]
